FAERS Safety Report 24571642 (Version 1)
Quarter: 2024Q4

REPORT INFORMATION
  Report Type: Spontaneous
  Country: US (occurrence: None)
  Receive Date: 20241031
  Receipt Date: 20241031
  Transmission Date: 20250115
  Serious: No
  Sender: Public
  Company Number: None

PATIENT
  Age: 53 Year
  Sex: Female
  Weight: 91.17 kg

DRUGS (2)
  1. COSENTYX [Suspect]
     Active Substance: SECUKINUMAB
     Indication: Psoriatic arthropathy
     Dosage: OTHER FREQUENCY : DAY 28 DOSE 5;?
     Route: 058
  2. COSENTYX [Suspect]
     Active Substance: SECUKINUMAB
     Dosage: FREQUENCY : MONTHLY;?
     Route: 058
     Dates: start: 202403

REACTIONS (1)
  - Fungal infection [None]
